FAERS Safety Report 8390340-6 (Version None)
Quarter: 2012Q2

REPORT INFORMATION
  Report Type: 
  Country: None (occurrence: None)
  Receive Date: 20120529
  Receipt Date: 20120522
  Transmission Date: 20120825
  Serious: Yes (Life-Threatening)
  Sender: FDA-Public Use
  Company Number: JP-SANOFI-AVENTIS-2010SA044314

PATIENT
  Age: 63 Year
  Sex: Male
  Weight: 72 kg

DRUGS (14)
  1. AMARYL [Concomitant]
     Route: 048
     Dates: end: 20090610
  2. ZYLORIC ^FRESENIUS^ [Concomitant]
     Route: 048
     Dates: end: 20100722
  3. SIGMART [Concomitant]
     Route: 048
     Dates: start: 20080715, end: 20100722
  4. CONIEL [Concomitant]
     Route: 048
     Dates: end: 20100722
  5. DOXAZOSIN MESYLATE [Concomitant]
     Route: 048
     Dates: end: 20100722
  6. OMEPRAZOLE [Concomitant]
     Indication: PROPHYLAXIS
     Route: 048
     Dates: end: 20100722
  7. ISOSORBIDE DINITRATE [Concomitant]
     Route: 062
     Dates: start: 20080715, end: 20100722
  8. CLOPIDOGREL BISULFATE [Suspect]
     Route: 048
     Dates: start: 20080716, end: 20090121
  9. AMARYL [Concomitant]
     Route: 048
     Dates: start: 20081128, end: 20090610
  10. LOSARTAN POTASSIUM [Concomitant]
     Route: 048
     Dates: start: 20080715, end: 20100722
  11. MIGLITOL [Concomitant]
     Route: 048
     Dates: end: 20090610
  12. OSELTAMIVIR [Concomitant]
     Route: 048
     Dates: start: 20090120, end: 20090126
  13. CLOPIDOGREL BISULFATE [Suspect]
     Indication: ANGINA UNSTABLE
     Route: 048
     Dates: start: 20080715, end: 20080715
  14. ASPIRIN [Suspect]
     Route: 048
     Dates: start: 20080715, end: 20100722

REACTIONS (1)
  - CORONARY ARTERY RESTENOSIS [None]
